FAERS Safety Report 4486526-3 (Version None)
Quarter: 2004Q4

REPORT INFORMATION
  Report Type: 
  Country: None (occurrence: None)
  Receive Date: 20041021
  Receipt Date: 20041011
  Transmission Date: 20050328
  Serious: Yes (Hospitalization)
  Sender: FDA-Public Use
  Company Number: K200401548

PATIENT
  Age: 78 Year
  Sex: Female

DRUGS (16)
  1. ALTACE [Suspect]
     Dosage: 5 MG,QD, IN THE MORNING, ORAL
     Route: 048
     Dates: end: 20040828
  2. KETOPROFEN [Suspect]
     Indication: BACK PAIN
     Dosage: 150 MG, QD, ORAL
     Route: 048
     Dates: start: 20040814, end: 20040828
  3. FORTZAAR (HYDROCHLOROTHIAZIDE, LOSARTAN POTASSIUM) TABLET, 1U [Suspect]
     Dosage: 1 TAB , QD, ORAL
     Route: 048
     Dates: end: 20040828
  4. DIAMICRON (GLICLAZIDE) TABLET [Concomitant]
  5. METFORMINE ^MERCK^ (METFORMIN HYDROCHLORIDE) TABLET [Concomitant]
  6. LYTOS (CLODRONATE DISODIUM) TABLET [Concomitant]
  7. ARMIDEX ^ASTRAZENECA^ (ANASTROZOLE) TABLET [Concomitant]
  8. CELECTOL [Concomitant]
  9. ALLOPURINOL [Concomitant]
  10. BROMAZEPAM (BROMAZEPAM) [Concomitant]
  11. IMODIUM :JANSSWEN^ (LOPERAMIDE HYDROCHLORIDE) [Concomitant]
  12. OMEPRAZOLE [Concomitant]
  13. PRIMPERAN TAB [Concomitant]
  14. SMECTA ^DAE WOONG^ (SMECTITE) [Concomitant]
  15. ARESTAL (LOPERAMIDE OXIDE) [Concomitant]
  16. CLINUTREN [Concomitant]

REACTIONS (12)
  - ABNORMAL BEHAVIOUR [None]
  - BACK PAIN [None]
  - BONE DISORDER [None]
  - DIARRHOEA [None]
  - DRUG INEFFECTIVE [None]
  - GENERAL PHYSICAL HEALTH DETERIORATION [None]
  - HYPOGLYCAEMIA [None]
  - METABOLIC ACIDOSIS [None]
  - NAUSEA [None]
  - RENAL FAILURE ACUTE [None]
  - RHABDOMYOLYSIS [None]
  - VOMITING [None]
